FAERS Safety Report 7335788-3 (Version None)
Quarter: 2011Q1

REPORT INFORMATION
  Report Type: 
  Country: None (occurrence: None)
  Receive Date: 20110302
  Receipt Date: 20110302
  Transmission Date: 20110831
  Serious: No
  Sender: FDA-Public Use
  Company Number: None

PATIENT
  Age: 30 Year
  Sex: Female
  Weight: 65.7716 kg

DRUGS (1)
  1. CIPRO [Suspect]
     Indication: ABDOMINAL PAIN UPPER
     Dates: start: 20090426, end: 20090428

REACTIONS (10)
  - SELF-INJURIOUS IDEATION [None]
  - ABDOMINAL PAIN UPPER [None]
  - ARTHRALGIA [None]
  - PAIN [None]
  - IMPAIRED WORK ABILITY [None]
  - MALAISE [None]
  - TENDONITIS [None]
  - MYALGIA [None]
  - ASTHENIA [None]
  - URTICARIA [None]
